FAERS Safety Report 9962313 (Version 1)
Quarter: 2014Q1

REPORT INFORMATION
  Report Type: Spontaneous
  Country: US (occurrence: US)
  Receive Date: 20140305
  Receipt Date: 20140305
  Transmission Date: 20141002
  Serious: No
  Sender: FDA-Public Use
  Company Number: US-ROXANE LABORATORIES, INC.-2014-RO-00351RO

PATIENT
  Age: 59 Year
  Sex: Female
  Weight: 93 kg

DRUGS (1)
  1. PREDNISONE [Suspect]
     Indication: INTERSTITIAL LUNG DISEASE
     Dosage: 40 MG
     Route: 048
     Dates: start: 20131227

REACTIONS (4)
  - Hyperglycaemia [Unknown]
  - Insomnia [Unknown]
  - Weight increased [Unknown]
  - Vertigo [Unknown]
